FAERS Safety Report 22093758 (Version 3)
Quarter: 2023Q1

REPORT INFORMATION
  Report Type: Report from Study
  Country: US (occurrence: US)
  Receive Date: 20230314
  Receipt Date: 20230329
  Transmission Date: 20230418
  Serious: Yes (Other)
  Sender: FDA-Public Use
  Company Number: US-ORGANON-O2303USA001046

PATIENT
  Age: 17 Year
  Sex: Female
  Weight: 90.703 kg

DRUGS (1)
  1. IMPLANON [Suspect]
     Active Substance: ETONOGESTREL
     Indication: Contraception
     Dosage: STRENGTH: 68 MILLIGRAM, 1 ROD, ON HER LEFT ARM
     Route: 059
     Dates: start: 20230113, end: 20230116

REACTIONS (3)
  - Device expulsion [Recovered/Resolved with Sequelae]
  - Wrong technique in device usage process [Unknown]
  - No adverse event [Unknown]

NARRATIVE: CASE EVENT DATE: 20230115
